FAERS Safety Report 16429002 (Version 9)
Quarter: 2023Q4

REPORT INFORMATION
  Report Type: Spontaneous
  Country: CA (occurrence: CA)
  Receive Date: 20190613
  Receipt Date: 20231104
  Transmission Date: 20240110
  Serious: Yes (Other)
  Sender: FDA-Public Use
  Company Number: None

PATIENT

DRUGS (9)
  1. INFLECTRA [Suspect]
     Active Substance: INFLIXIMAB-DYYB
     Indication: Crohn^s disease
     Dosage: 400 MG, AT 0, 2, 6, AND THE EVERY 8 WEEKS
     Route: 042
     Dates: start: 20190530
  2. INFLECTRA [Suspect]
     Active Substance: INFLIXIMAB-DYYB
     Dosage: 400 MG, AT 0, 2, 6, AND THE EVERY 8 WEEKS
     Route: 042
     Dates: start: 20191220
  3. INFLECTRA [Suspect]
     Active Substance: INFLIXIMAB-DYYB
     Dosage: 400 MG, AT 0, 2, 6, AND THE EVERY 8 WEEKS
     Route: 042
     Dates: start: 20200226
  4. INFLECTRA [Suspect]
     Active Substance: INFLIXIMAB-DYYB
     Dosage: 400 MG, AT 0, 2, 6, AND THE EVERY 8 WEEKS
     Route: 042
     Dates: start: 20200508
  5. INFLECTRA [Suspect]
     Active Substance: INFLIXIMAB-DYYB
     Dosage: 400 MG, AT 0, 2, 6, AND THE EVERY 8 WEEKS
     Route: 042
     Dates: start: 20200828
  6. INFLECTRA [Suspect]
     Active Substance: INFLIXIMAB-DYYB
     Dosage: 400 MG, AT 0, 2, 6, AND THE EVERY 8 WEEKS
     Route: 042
     Dates: start: 20201023
  7. PENTASA [Concomitant]
     Active Substance: MESALAMINE
     Dosage: UNK UNK, QD
     Route: 048
  8. IMURAN [Concomitant]
     Active Substance: AZATHIOPRINE
     Dosage: UNK, 1X/DAY
     Route: 048
  9. BUDESONIDE [Concomitant]
     Active Substance: BUDESONIDE
     Dosage: UNK, 1X/DAY
     Route: 048

REACTIONS (9)
  - Syncope [Recovered/Resolved]
  - Presyncope [Recovered/Resolved]
  - Hyperhidrosis [Recovering/Resolving]
  - Injection site paraesthesia [Recovering/Resolving]
  - Pallor [Recovering/Resolving]
  - Blood pressure abnormal [Recovering/Resolving]
  - Heart rate decreased [Unknown]
  - Inappropriate schedule of product administration [Unknown]
  - Blood pressure systolic increased [Unknown]

NARRATIVE: CASE EVENT DATE: 20190530
